FAERS Safety Report 21106435 (Version 2)
Quarter: 2022Q3

REPORT INFORMATION
  Report Type: Spontaneous
  Country: US (occurrence: US)
  Receive Date: 20220720
  Receipt Date: 20220721
  Transmission Date: 20221027
  Serious: No
  Sender: FDA-Public Use
  Company Number: US-PFIZER INC-202200982086

PATIENT
  Sex: Male

DRUGS (1)
  1. GABAPENTIN [Suspect]
     Active Substance: GABAPENTIN
     Dosage: 2 DF, DAILY ( PILLS A DAY ONE AT 12 O^CLOCK IN THE AFTERNOON AND ONE AT 6)

REACTIONS (1)
  - Eye irritation [Unknown]
